FAERS Safety Report 10431445 (Version 1)
Quarter: 2014Q3

REPORT INFORMATION
  Report Type: Spontaneous
  Country: GR (occurrence: GR)
  Receive Date: 20140904
  Receipt Date: 20140904
  Transmission Date: 20150326
  Serious: Yes (Other)
  Sender: FDA-Public Use
  Company Number: GR-GLAXOSMITHKLINE-B1029326A

PATIENT
  Age: 59 Year
  Sex: Female

DRUGS (1)
  1. VOTRIENT [Suspect]
     Active Substance: PAZOPANIB HYDROCHLORIDE
     Indication: RENAL CANCER
     Route: 065
     Dates: start: 20140720, end: 20140826

REACTIONS (11)
  - Electrocardiogram QT prolonged [Unknown]
  - Thrombocytopenia [Recovered/Resolved]
  - Neutropenia [Recovered/Resolved]
  - Mouth haemorrhage [Recovered/Resolved]
  - Ejection fraction decreased [Unknown]
  - Anaemia [Not Recovered/Not Resolved]
  - Ear haemorrhage [Recovered/Resolved]
  - Blood bilirubin increased [Not Recovered/Not Resolved]
  - Epistaxis [Recovered/Resolved]
  - Haematinuria [Recovered/Resolved]
  - Hepatic enzyme increased [Not Recovered/Not Resolved]

NARRATIVE: CASE EVENT DATE: 20140820
